FAERS Safety Report 7631590-3 (Version None)
Quarter: 2011Q3

REPORT INFORMATION
  Report Type: 
  Country: None (occurrence: None)
  Receive Date: 20110725
  Receipt Date: 20110712
  Transmission Date: 20111222
  Serious: Yes (Other)
  Sender: FDA-Public Use
  Company Number: DE-ALLERGAN-1109392US

PATIENT
  Age: 48 Year
  Sex: Female

DRUGS (1)
  1. OZURDEX [Suspect]
     Indication: UVEITIS
     Dosage: 0.7 MG, SINGLE
     Route: 031
     Dates: start: 20110405, end: 20110405

REACTIONS (4)
  - ANTERIOR CHAMBER DISORDER [None]
  - CORNEAL DISORDER [None]
  - VISUAL ACUITY REDUCED [None]
  - DEVICE DISLOCATION [None]
